FAERS Safety Report 6537039-6 (Version None)
Quarter: 2010Q1

REPORT INFORMATION
  Report Type: 
  Country: None (occurrence: None)
  Receive Date: 20100114
  Receipt Date: 20100106
  Transmission Date: 20100710
  Serious: Yes (Hospitalization)
  Sender: FDA-Public Use
  Company Number: US-BIOGENIDEC-2009BI033592

PATIENT
  Age: 67 Year
  Sex: Female

DRUGS (2)
  1. AVONEX [Suspect]
     Indication: MULTIPLE SCLEROSIS
     Route: 030
     Dates: start: 19980101, end: 20020101
  2. AVONEX [Suspect]
     Route: 030
     Dates: start: 20050701

REACTIONS (12)
  - ABASIA [None]
  - CARDIAC DISORDER [None]
  - CYSTITIS [None]
  - DEHYDRATION [None]
  - DYSPNOEA [None]
  - FALL [None]
  - MEMORY IMPAIRMENT [None]
  - STAPHYLOCOCCAL INFECTION [None]
  - SYNCOPE [None]
  - TRACHEOSTOMY [None]
  - URINARY INCONTINENCE [None]
  - WEIGHT DECREASED [None]
